FAERS Safety Report 7402785-9 (Version None)
Quarter: 2011Q2

REPORT INFORMATION
  Report Type: 
  Country: None (occurrence: None)
  Receive Date: 20110408
  Receipt Date: 20110330
  Transmission Date: 20111010
  Serious: Yes (Hospitalization)
  Sender: FDA-Public Use
  Company Number: FR-MPIJNJ-2011-01321

PATIENT

DRUGS (10)
  1. IMPORTAL [Concomitant]
  2. PREDNISONE [Concomitant]
     Dosage: 60 MG, UNK
     Dates: start: 20110118, end: 20110121
  3. SERETAIDE DISKUS [Concomitant]
  4. METOCLOPRAMIDE [Concomitant]
     Dosage: UNK
     Dates: start: 20110118, end: 20110121
  5. VELCADE [Suspect]
     Dosage: 1.7 UNK, UNK
     Route: 042
     Dates: start: 20110125
  6. ONDANSETRON [Concomitant]
     Dosage: 5 MG, UNK
     Dates: start: 20110118, end: 20110121
  7. VELCADE [Suspect]
     Indication: MULTIPLE MYELOMA
     Dosage: 2.3 MG, CYCLIC
     Route: 042
     Dates: start: 20110118
  8. MELPHALAN [Concomitant]
     Dosage: 8 MG, UNK
     Dates: start: 20110118, end: 20110121
  9. ATACAND [Concomitant]
  10. SERESTA [Concomitant]

REACTIONS (1)
  - VENTRICULAR EXTRASYSTOLES [None]
